FAERS Safety Report 4829662-1 (Version None)
Quarter: 2005Q4

REPORT INFORMATION
  Report Type: 
  Country: None (occurrence: None)
  Receive Date: 20051116
  Receipt Date: 20041117
  Transmission Date: 20060501
  Serious: Yes (Hospitalization)
  Sender: FDA-Public Use
  Company Number: DE-MERCK-0411DEU00419

PATIENT
  Age: 53 Year
  Sex: Female

DRUGS (10)
  1. ACETYLCYSTEINE [Concomitant]
     Route: 048
     Dates: start: 20020801, end: 20040501
  2. ACETYLCYSTEINE [Concomitant]
     Route: 048
     Dates: start: 20000201
  3. PANTOPRAZOLE [Concomitant]
     Route: 048
     Dates: start: 20020801, end: 20040501
  4. LEVOTHYROXINE SODIUM [Concomitant]
     Route: 048
     Dates: start: 20020801, end: 20040501
  5. FENOTEROL HYDROBROMIDE AND IPRATROPIUM BROMIDE [Concomitant]
     Route: 055
     Dates: start: 20020801, end: 20040501
  6. BUDESONIDE [Concomitant]
     Route: 055
     Dates: start: 20020801, end: 20040501
  7. FOLIC ACID [Concomitant]
     Route: 065
  8. ZOCOR [Concomitant]
     Route: 048
     Dates: start: 20020801, end: 20040501
  9. VIOXX [Suspect]
     Indication: POLYARTHRITIS
     Route: 048
     Dates: start: 20020808, end: 20040501
  10. METOPROLOL SUCCINATE [Concomitant]
     Route: 048
     Dates: start: 20020801, end: 20040501

REACTIONS (21)
  - ANGINA UNSTABLE [None]
  - BLOOD PRESSURE FLUCTUATION [None]
  - BUNDLE BRANCH BLOCK RIGHT [None]
  - CHEST PAIN [None]
  - DIVERTICULUM [None]
  - DIVERTICULUM INTESTINAL [None]
  - DIZZINESS [None]
  - EPISTAXIS [None]
  - GASTROOESOPHAGEAL REFLUX DISEASE [None]
  - GENERAL PHYSICAL HEALTH DETERIORATION [None]
  - HEADACHE [None]
  - HELICOBACTER GASTRITIS [None]
  - HIATUS HERNIA [None]
  - MIGRAINE [None]
  - NAUSEA [None]
  - PANCREATIC INSUFFICIENCY [None]
  - PANCREATITIS [None]
  - PARAESTHESIA [None]
  - STRESS [None]
  - TACHYCARDIA [None]
  - TENSION HEADACHE [None]
